FAERS Safety Report 7734928-1 (Version None)
Quarter: 2011Q3

REPORT INFORMATION
  Report Type: 
  Country: None (occurrence: None)
  Receive Date: 20110907
  Receipt Date: 20110830
  Transmission Date: 20111222
  Serious: Yes (Other)
  Sender: FDA-Public Use
  Company Number: PHEH2010US03427

PATIENT
  Sex: Male

DRUGS (1)
  1. PAMIDRONATE DISODIUM [Suspect]
     Dosage: UNK UKN, UNK

REACTIONS (19)
  - INJURY [None]
  - ANXIETY [None]
  - ATELECTASIS [None]
  - INTERVERTEBRAL DISC SPACE NARROWING [None]
  - PROSTATE CANCER [None]
  - OSTEOARTHRITIS [None]
  - PAIN [None]
  - RENAL CYST [None]
  - FEMORAL NECK FRACTURE [None]
  - ARTERIOSCLEROSIS CORONARY ARTERY [None]
  - CARDIOMEGALY [None]
  - HIP FRACTURE [None]
  - OSTEONECROSIS OF JAW [None]
  - DISABILITY [None]
  - ANHEDONIA [None]
  - HIATUS HERNIA [None]
  - PULMONARY GRANULOMA [None]
  - ARTHRITIS [None]
  - OSTEOSCLEROSIS [None]
